FAERS Safety Report 15918954 (Version 1)
Quarter: 2019Q1

REPORT INFORMATION
  Report Type: Spontaneous
  Country: CN (occurrence: CN)
  Receive Date: 20190205
  Receipt Date: 20190205
  Transmission Date: 20190417
  Serious: Yes (Other)
  Sender: FDA-Public Use
  Company Number: CN-PFIZER INC-2019044703

PATIENT
  Age: 62 Year
  Sex: Male
  Weight: 75 kg

DRUGS (1)
  1. CELEBREX [Suspect]
     Active Substance: CELECOXIB
     Indication: THERAPEUTIC PROCEDURE
     Dosage: 0.2 G, 2X/DAY
     Route: 048
     Dates: start: 20181005, end: 20181012

REACTIONS (3)
  - Drug eruption [Recovering/Resolving]
  - Blister [Unknown]
  - Erythema [Recovering/Resolving]

NARRATIVE: CASE EVENT DATE: 20181012
